FAERS Safety Report 20016734 (Version 1)
Quarter: 2021Q4

REPORT INFORMATION
  Report Type: Spontaneous
  Country: US (occurrence: None)
  Receive Date: 20211104
  Receipt Date: 20211104
  Transmission Date: 20220303
  Serious: No
  Sender: FDA-Public Use
  Company Number: None

PATIENT
  Sex: Female

DRUGS (1)
  1. RETEVMO [Suspect]
     Active Substance: SELPERCATINIB
     Indication: Rheumatoid arthritis
     Dosage: FREQUENCY : TWICE A DAY;?
     Route: 048
     Dates: start: 202010

REACTIONS (6)
  - Hot flush [None]
  - Hyperhidrosis [None]
  - Fatigue [None]
  - Dry mouth [None]
  - Therapy change [None]
  - Subcutaneous abscess [None]
